FAERS Safety Report 4946216-7 (Version None)
Quarter: 2006Q1

REPORT INFORMATION
  Report Type: 
  Country: None (occurrence: None)
  Receive Date: 20060201
  Receipt Date: 20051216
  Transmission Date: 20060701
  Serious: No
  Sender: FDA-Public Use
  Company Number: 2005PV006044

PATIENT
  Age: 60 Year
  Sex: Male
  Weight: 204.1187 kg

DRUGS (3)
  1. BYETTA [Suspect]
     Indication: DIABETES MELLITUS NON-INSULIN-DEPENDENT
     Dosage: 10 MG BID SC, 5 MCG BID SC
     Route: 058
     Dates: start: 20051103, end: 20051201
  2. BYETTA [Suspect]
     Indication: DIABETES MELLITUS NON-INSULIN-DEPENDENT
     Dosage: 10 MG BID SC, 5 MCG BID SC
     Route: 058
     Dates: start: 20051202
  3. GLUCOTROL XL [Concomitant]

REACTIONS (3)
  - BLOOD GLUCOSE DECREASED [None]
  - DYSPEPSIA [None]
  - NAUSEA [None]
